FAERS Safety Report 6643335-4 (Version None)
Quarter: 2010Q1

REPORT INFORMATION
  Report Type: 
  Country: None (occurrence: None)
  Receive Date: 20100304
  Receipt Date: 20091029
  Transmission Date: 20100710
  Serious: Yes (Other)
  Sender: FDA-Public Use
  Company Number: US-003661

PATIENT
  Age: 77 Year
  Sex: Female

DRUGS (2)
  1. ISOVUE-300 [Suspect]
     Indication: CATHETERISATION CARDIAC
     Dosage: INTRAVENOUS (NOT OTHERWISE SPECIFIED)
     Route: 042
     Dates: start: 20091027, end: 20091027
  2. BENADRYL [Concomitant]

REACTIONS (1)
  - HYPERSENSITIVITY [None]
